FAERS Safety Report 19408601 (Version 1)
Quarter: 2021Q2

REPORT INFORMATION
  Report Type: Spontaneous
  Country: US (occurrence: US)
  Receive Date: 20210612
  Receipt Date: 20210612
  Transmission Date: 20210717
  Serious: No
  Sender: FDA-Public Use
  Company Number: US-TEVA-2021-US-1921103

PATIENT
  Sex: Female

DRUGS (1)
  1. ALBUTEROL SULFTAE HFA [Suspect]
     Active Substance: ALBUTEROL SULFATE
     Route: 065

REACTIONS (3)
  - Vocal cord paralysis [Not Recovered/Not Resolved]
  - Illness [Unknown]
  - Gait disturbance [Unknown]
